FAERS Safety Report 16912641 (Version 1)
Quarter: 2019Q4

REPORT INFORMATION
  Report Type: Spontaneous
  Country: GB (occurrence: GB)
  Receive Date: 20191014
  Receipt Date: 20191014
  Transmission Date: 20200122
  Serious: Yes (Other)
  Sender: FDA-Public Use
  Company Number: GB-TEVA-2019-GB-1120774

PATIENT
  Age: 34 Year
  Sex: Male
  Weight: 71 kg

DRUGS (2)
  1. ARIPIPRAZOLE. [Suspect]
     Active Substance: ARIPIPRAZOLE
     Indication: TIC
     Dosage: FOR 3 MONTHS, 5 MG AT NIGHT
     Route: 048
     Dates: start: 20140715, end: 201410
  2. ARIPIPRAZOLE. [Suspect]
     Active Substance: ARIPIPRAZOLE
     Dosage: AT NIGHT, 2.5 MG
     Route: 048
     Dates: end: 20190210

REACTIONS (4)
  - Blepharospasm [Not Recovered/Not Resolved]
  - Tardive dyskinesia [Not Recovered/Not Resolved]
  - Pain [Unknown]
  - Fatigue [Not Recovered/Not Resolved]

NARRATIVE: CASE EVENT DATE: 20161001
